FAERS Safety Report 22367096 (Version 1)
Quarter: 2023Q2

REPORT INFORMATION
  Report Type: Spontaneous
  Country: US (occurrence: None)
  Receive Date: 20230524
  Receipt Date: 20230524
  Transmission Date: 20230722
  Serious: No
  Sender: FDA-Public Use
  Company Number: None

PATIENT
  Sex: Female

DRUGS (12)
  1. TEMOZOLOMIDE [Suspect]
     Active Substance: TEMOZOLOMIDE
     Indication: Brain neoplasm malignant
     Dosage: OTHER QUANTITY : 2CAP 5D ON/23D OFF;?FREQUENCY : DAILY;?
     Route: 048
  2. VITAMIN D3 [Concomitant]
  3. CLONAZEPAM [Concomitant]
  4. DEXAMETHASONE [Concomitant]
  5. ESOMEPRAZOLE [Concomitant]
  6. ESTRADIOL [Concomitant]
  7. LEVETIRACETAM [Concomitant]
     Active Substance: LEVETIRACETAM
  8. MYRBETRIO [Concomitant]
  9. ONDANSETRON [Concomitant]
  10. PROBIOTIC-10 ULTIMATE [Concomitant]
  11. ROSUVASTATIN [Concomitant]
  12. EMERGEN-C [Concomitant]
     Active Substance: VITAMINS

REACTIONS (2)
  - Brain neoplasm malignant [None]
  - Malignant neoplasm progression [None]
